FAERS Safety Report 4608719-4 (Version None)
Quarter: 2005Q1

REPORT INFORMATION
  Report Type: 
  Country: None (occurrence: None)
  Receive Date: 20050315
  Receipt Date: 20050310
  Transmission Date: 20050727
  Serious: Yes (Death)
  Sender: FDA-Public Use
  Company Number: PHBS2005PL03539

PATIENT
  Age: 25 Year
  Sex: Female

DRUGS (3)
  1. TEGRETOL [Suspect]
     Dosage: 50 X 200 MG ONCE/SINGLE
     Route: 048
  2. CLONAZEPAM [Suspect]
     Dosage: 30 X 0.5 MG ONCE/SINGLE
     Route: 048
  3. FLUANXOL [Suspect]
     Dosage: 50 X 3 MG, ONCE/SINGLE
     Route: 048

REACTIONS (1)
  - INTENTIONAL MISUSE [None]
